FAERS Safety Report 17399333 (Version 1)
Quarter: 2020Q1

REPORT INFORMATION
  Report Type: Spontaneous
  Country: US (occurrence: US)
  Receive Date: 20200211
  Receipt Date: 20200211
  Transmission Date: 20200409
  Serious: Yes (Other)
  Sender: FDA-Public Use
  Company Number: US-TAKEDA-2020TUS007788

PATIENT
  Sex: Female

DRUGS (1)
  1. TRINTELLIX [Suspect]
     Active Substance: VORTIOXETINE HYDROBROMIDE
     Indication: PRODUCT USED FOR UNKNOWN INDICATION
     Dosage: UNK
     Route: 065

REACTIONS (6)
  - Serotonin syndrome [Recovered/Resolved]
  - Migraine [Not Recovered/Not Resolved]
  - Atrial fibrillation [Recovered/Resolved]
  - Body temperature fluctuation [Not Recovered/Not Resolved]
  - Alopecia [Unknown]
  - Hyperthyroidism [Unknown]
